FAERS Safety Report 5483882-4 (Version None)
Quarter: 2007Q4

REPORT INFORMATION
  Report Type: 
  Country: None (occurrence: None)
  Receive Date: 20071009
  Receipt Date: 20070925
  Transmission Date: 20080405
  Serious: Yes (Death)
  Sender: FDA-Public Use
  Company Number: 17597

PATIENT
  Age: 8 Year
  Sex: Male

DRUGS (3)
  1. METHOTREXATE [Suspect]
     Indication: ACUTE LYMPHOCYTIC LEUKAEMIA
  2. DAUNORUBICIN [Concomitant]
  3. VINCRISTINE [Concomitant]

REACTIONS (11)
  - BRADYCARDIA [None]
  - BRAIN OEDEMA [None]
  - DIARRHOEA [None]
  - DRUG TOXICITY [None]
  - ENCEPHALOPATHY [None]
  - MOVEMENT DISORDER [None]
  - MUCOSAL INFLAMMATION [None]
  - MYDRIASIS [None]
  - ORAL PAIN [None]
  - PAPILLOEDEMA [None]
  - UNRESPONSIVE TO STIMULI [None]
